FAERS Safety Report 5842734-8 (Version None)
Quarter: 2008Q3

REPORT INFORMATION
  Report Type: 
  Country: None (occurrence: None)
  Receive Date: 20080808
  Receipt Date: 20080724
  Transmission Date: 20090109
  Serious: Yes (Hospitalization)
  Sender: FDA-Public Use
  Company Number: 2008PV034172

PATIENT
  Age: 50 Year
  Sex: Female

DRUGS (4)
  1. SYMLIN [Suspect]
     Indication: TYPE 1 DIABETES MELLITUS
     Dosage: 60 MCG;BID;SC
     Route: 058
     Dates: start: 20070201
  2. INSULINS AND ANALOGUES, FAST ACTING [Concomitant]
  3. LANTUS [Concomitant]
  4. APIDRA [Concomitant]

REACTIONS (4)
  - BLOOD GLUCOSE FLUCTUATION [None]
  - GASTROENTERITIS VIRAL [None]
  - INFLUENZA [None]
  - KETOACIDOSIS [None]
